FAERS Safety Report 24840342 (Version 2)
Quarter: 2025Q1

REPORT INFORMATION
  Report Type: Spontaneous
  Country: JP (occurrence: JP)
  Receive Date: 20250114
  Receipt Date: 20250120
  Transmission Date: 20250409
  Serious: Yes (Other)
  Sender: ASTELLAS
  Company Number: JP-ASTELLAS-2025-AER-000961

PATIENT
  Age: 8 Decade
  Sex: Male

DRUGS (1)
  1. VYLOY [Suspect]
     Active Substance: ZOLBETUXIMAB-CLZB
     Indication: Gastric cancer
     Route: 042
     Dates: start: 20240903

REACTIONS (3)
  - Spinal compression fracture [Unknown]
  - Gastrointestinal oedema [Unknown]
  - Gastritis [Unknown]

NARRATIVE: CASE EVENT DATE: 20241209
